FAERS Safety Report 17680084 (Version 1)
Quarter: 2020Q2

REPORT INFORMATION
  Report Type: Spontaneous
  Country: US (occurrence: US)
  Receive Date: 20200417
  Receipt Date: 20200417
  Transmission Date: 20200714
  Serious: No
  Sender: FDA-Public Use
  Company Number: None

PATIENT
  Sex: Female

DRUGS (2)
  1. TRAVATAN [Suspect]
     Active Substance: TRAVOPROST
  2. LATANOPROST. [Suspect]
     Active Substance: LATANOPROST

REACTIONS (5)
  - Headache [None]
  - Nausea [None]
  - Eye haemorrhage [None]
  - Dizziness [None]
  - Urticaria [None]
